FAERS Safety Report 12856730 (Version 3)
Quarter: 2016Q4

REPORT INFORMATION
  Report Type: Report from Study
  Country: US (occurrence: US)
  Receive Date: 20161018
  Receipt Date: 20161202
  Transmission Date: 20170207
  Serious: Yes (Hospitalization, Other)
  Sender: FDA-Public Use
  Company Number: PHHO2016US015023

PATIENT
  Age: 28 Year
  Sex: Female
  Weight: 84.9 kg

DRUGS (100)
  1. ACTIGALL [Concomitant]
     Active Substance: URSODIOL
     Indication: PRODUCT USED FOR UNKNOWN INDICATION
     Dosage: 300 MG, BID
     Route: 048
     Dates: end: 20161010
  2. GRANIX [Concomitant]
     Active Substance: TBO-FILGRASTIM
     Indication: WHITE BLOOD CELL DISORDER
     Dosage: UNK
     Route: 065
     Dates: start: 20160930
  3. FLUID/ELECTROLYTE REPLACEMENT THERAPY [Concomitant]
     Active Substance: UNSPECIFIED INGREDIENT
     Dosage: 75 ML/HOURS
     Route: 042
     Dates: start: 20160915, end: 20160915
  4. BENADRYL [Concomitant]
     Active Substance: DIPHENHYDRAMINE HYDROCHLORIDE
     Indication: TRANSFUSION
     Dosage: 25 MG, Q18H
     Route: 042
     Dates: start: 20160918, end: 20161010
  5. ZYPREXA [Concomitant]
     Active Substance: OLANZAPINE
     Dosage: 5 MG, QHS
     Route: 065
     Dates: start: 20160913, end: 20161009
  6. ROXICODONE [Concomitant]
     Active Substance: OXYCODONE HYDROCHLORIDE
     Indication: PRODUCT USED FOR UNKNOWN INDICATION
     Dosage: 5 MG (IMMEDIATE RELEASE TABLET), Q8H (PRN)
     Route: 048
     Dates: end: 20161009
  7. PHENERGAN [Concomitant]
     Active Substance: PROMETHAZINE HYDROCHLORIDE
     Indication: PRODUCT USED FOR UNKNOWN INDICATION
     Dosage: 12.5 MG, Q8H
     Route: 042
     Dates: start: 20160911
  8. FLAGYL [Concomitant]
     Active Substance: METRONIDAZOLE\METRONIDAZOLE HYDROCHLORIDE
     Indication: FEBRILE NEUTROPENIA
     Dosage: 500 MG, Q5H
     Route: 042
     Dates: start: 20160929, end: 20161009
  9. LASIX [Concomitant]
     Active Substance: FUROSEMIDE
     Indication: FLUID OVERLOAD
     Dosage: 20 MG, ONCE/SINGLE
     Route: 042
     Dates: start: 20160924, end: 20160924
  10. LASIX [Concomitant]
     Active Substance: FUROSEMIDE
     Dosage: 60 MG, ONCE/SINGLE
     Route: 042
     Dates: start: 20161006, end: 20161006
  11. MEROPENEM. [Concomitant]
     Active Substance: MEROPENEM
     Indication: FEBRILE NEUTROPENIA
     Dosage: 500 MG, Q6H
     Route: 042
     Dates: start: 20160925, end: 20160926
  12. MELATONIN [Concomitant]
     Active Substance: MELATONIN
     Indication: INSOMNIA
     Dosage: 2-4 MG, PRN
     Route: 042
     Dates: start: 20161008, end: 20161008
  13. FLUID/ELECTROLYTE REPLACEMENT THERAPY [Concomitant]
     Active Substance: UNSPECIFIED INGREDIENT
     Dosage: 75 ML/HOURS
     Route: 042
     Dates: start: 20160920, end: 20160920
  14. SODIUM FLUORIDE. [Concomitant]
     Active Substance: SODIUM FLUORIDE
     Indication: PRODUCT USED FOR UNKNOWN INDICATION
     Dosage: 1.1 % GEL
     Route: 048
  15. TRIAMCINOLON [Concomitant]
     Indication: PRODUCT USED FOR UNKNOWN INDICATION
     Dosage: 0.1% CRAEM TWICE DAILY
     Route: 065
  16. BENADRYL [Concomitant]
     Active Substance: DIPHENHYDRAMINE HYDROCHLORIDE
     Dosage: UNK
  17. DUKES MOUTHWASH [Concomitant]
     Indication: STOMATITIS
     Dosage: 5 ML, Q6H
     Route: 048
     Dates: start: 20160920, end: 20161010
  18. FOSCAVIR [Concomitant]
     Active Substance: FOSCARNET SODIUM
     Dosage: UNK
  19. ATIVAN [Concomitant]
     Active Substance: LORAZEPAM
     Dosage: 1 MG (2MG/ML INJECTION), Q4H (PRN)
     Route: 042
     Dates: end: 20161009
  20. SODIUM CHLORIDE. [Concomitant]
     Active Substance: SODIUM CHLORIDE
     Indication: PRODUCT USED FOR UNKNOWN INDICATION
     Dosage: 10 ML/HR (0.9% INFUSION)
     Route: 042
     Dates: end: 20161009
  21. CYTOXAN [Concomitant]
     Active Substance: CYCLOPHOSPHAMIDE
     Indication: PRODUCT USED FOR UNKNOWN INDICATION
     Dosage: 4210 MG, QD
     Route: 065
     Dates: start: 20160911, end: 20160912
  22. BUSULFAN. [Concomitant]
     Active Substance: BUSULFAN
     Dosage: 66 MG, Q6H
     Route: 065
     Dates: start: 20160907, end: 20160910
  23. GRANIX [Concomitant]
     Active Substance: TBO-FILGRASTIM
     Dosage: BID
     Route: 065
     Dates: start: 20161002
  24. AZACTAM [Concomitant]
     Active Substance: AZTREONAM
     Dosage: UNK
     Route: 065
     Dates: start: 20160927, end: 20161009
  25. MICAFUNGIN [Concomitant]
     Active Substance: MICAFUNGIN
     Indication: FUNGAL INFECTION
     Dosage: 100 MG, QD
     Route: 065
     Dates: start: 20160927, end: 20161003
  26. ACYCLOVIR. [Concomitant]
     Active Substance: ACYCLOVIR
     Indication: ANTIVIRAL PROPHYLAXIS
     Dosage: 400 MG, BID
     Route: 048
     Dates: start: 20160916, end: 20161009
  27. HYDROCORTISONE. [Concomitant]
     Active Substance: HYDROCORTISONE
     Dosage: 50 MG, ONCE/SINGLE
     Route: 042
     Dates: start: 20161002, end: 20161002
  28. METHOTREXATE. [Concomitant]
     Active Substance: METHOTREXATE
     Dosage: 19 MG, ONCE/SINGLE
     Route: 042
     Dates: start: 20160925, end: 20160925
  29. POLYETHYLENE GLYCOL [Concomitant]
     Active Substance: POLYETHYLENE GLYCOLS
     Indication: CONSTIPATION
     Dosage: 17 G, QD
     Route: 048
     Dates: start: 20160925, end: 20160925
  30. FLUID/ELECTROLYTE REPLACEMENT THERAPY [Concomitant]
     Active Substance: UNSPECIFIED INGREDIENT
     Indication: DEHYDRATION
     Dosage: 250 ML/HOURS
     Route: 042
     Dates: start: 20160911, end: 20160912
  31. RANITIDINE. [Concomitant]
     Active Substance: RANITIDINE
     Dosage: UNK
  32. TYLENOL [Concomitant]
     Active Substance: ACETAMINOPHEN
     Indication: PRODUCT USED FOR UNKNOWN INDICATION
     Dosage: 650 MG, Q4H (PRN)
     Route: 048
     Dates: end: 20161005
  33. ATIVAN [Concomitant]
     Active Substance: LORAZEPAM
     Indication: NAUSEA
     Dosage: 0.5 MG, TID AC
     Route: 048
     Dates: start: 20160914, end: 20161004
  34. VFEND [Concomitant]
     Active Substance: VORICONAZOLE
     Indication: PRODUCT USED FOR UNKNOWN INDICATION
     Dosage: 200 MG, Q12H
     Route: 048
     Dates: end: 20161010
  35. BUMEX [Concomitant]
     Active Substance: BUMETANIDE
     Indication: FLUID OVERLOAD
     Dosage: 2 MG, Q12H
     Route: 042
     Dates: start: 20161008, end: 20161008
  36. AZACTAM [Concomitant]
     Active Substance: AZTREONAM
     Indication: FEBRILE NEUTROPENIA
     Dosage: 2 G, Q8H
     Route: 042
     Dates: start: 20160922, end: 20160925
  37. LASIX [Concomitant]
     Active Substance: FUROSEMIDE
     Dosage: 40 MG, QD
     Route: 042
     Dates: start: 20160928, end: 20160930
  38. HYDROMORPHONE [Concomitant]
     Active Substance: HYDROMORPHONE
     Dosage: 0.5 MG,Q3H PRN
     Route: 042
  39. IBUPROFEN. [Concomitant]
     Active Substance: IBUPROFEN
     Indication: PYREXIA
     Dosage: 600 MG, UNK
     Route: 048
     Dates: start: 20161001, end: 20161001
  40. METHOTREXATE. [Concomitant]
     Active Substance: METHOTREXATE
     Dosage: 19 MG, ONCE/SINGLE
     Route: 042
     Dates: start: 20160920, end: 20160920
  41. FLUID/ELECTROLYTE REPLACEMENT THERAPY [Concomitant]
     Active Substance: UNSPECIFIED INGREDIENT
     Dosage: 75 ML/HOURS
     Route: 042
     Dates: start: 20160917, end: 20160917
  42. NEXAVAR [Concomitant]
     Active Substance: SORAFENIB
     Indication: PRODUCT USED FOR UNKNOWN INDICATION
     Dosage: 200 MG, BID
     Route: 048
  43. DUKES MOUTHWASH [Concomitant]
     Dosage: UNK
  44. ATIVAN [Concomitant]
     Active Substance: LORAZEPAM
     Dosage: 1 MG (TABLET), Q4H (PRN)
     Route: 048
     Dates: end: 20160930
  45. MEPHYTON [Concomitant]
     Active Substance: PHYTONADIONE
     Indication: PRODUCT USED FOR UNKNOWN INDICATION
     Dosage: 5 MG, QD
     Route: 048
     Dates: end: 20161010
  46. SODIUM CHLORIDE. [Concomitant]
     Active Substance: SODIUM CHLORIDE
     Dosage: 5 ML (SWISH AND SPIT), QID
     Route: 048
     Dates: end: 20161010
  47. VFEND [Concomitant]
     Active Substance: VORICONAZOLE
     Dosage: 200 MG, 2 TABLETS IN AM AND 1 TABLET AT NIGHT
     Route: 048
  48. LASIX [Concomitant]
     Active Substance: FUROSEMIDE
     Dosage: 40 MG, QD
     Route: 042
     Dates: start: 20161002, end: 20161002
  49. DAPTOMYCIN. [Concomitant]
     Active Substance: DAPTOMYCIN
     Indication: FEBRILE NEUTROPENIA
     Dosage: 400 MG, QD
     Route: 042
     Dates: start: 20160922
  50. ACETAMINOPHEN. [Concomitant]
     Active Substance: ACETAMINOPHEN
     Indication: TRANSFUSION
     Dosage: 650 MG, Q4H PRN
     Route: 048
     Dates: start: 20160914, end: 20161010
  51. CALCIUM GLUCONATE. [Concomitant]
     Active Substance: CALCIUM GLUCONATE
     Indication: HYPOCALCAEMIA
     Dosage: 1 G, PRN
     Route: 042
     Dates: start: 20160910, end: 20161009
  52. FEXOFENADINE [Concomitant]
     Active Substance: FEXOFENADINE\FEXOFENADINE HYDROCHLORIDE
     Indication: CEREBRAL CONGESTION
     Dosage: 180 MG, QD
     Route: 048
     Dates: start: 20160909, end: 20161007
  53. HYDROCORTISONE. [Concomitant]
     Active Substance: HYDROCORTISONE
     Dosage: 50 MG, ONCE/SINGLE
     Route: 042
     Dates: start: 20160927, end: 20160927
  54. HYDROMORPHONE [Concomitant]
     Active Substance: HYDROMORPHONE
     Indication: MUCOSAL INFLAMMATION
     Dosage: 0.3 MG, Q3H
     Route: 042
     Dates: start: 20160923, end: 20160924
  55. HYDROMORPHONE [Concomitant]
     Active Substance: HYDROMORPHONE
     Dosage: 0.37 MG, UNK
     Route: 042
     Dates: start: 20160924, end: 20160925
  56. HYDROMORPHONE [Concomitant]
     Active Substance: HYDROMORPHONE
     Dosage: 0.4 MG, UNK
     Route: 042
     Dates: start: 20160925, end: 20160929
  57. METHOTREXATE. [Concomitant]
     Active Substance: METHOTREXATE
     Dosage: 19 MG, ONCE/SINGLE
     Route: 042
     Dates: start: 20160917, end: 20160917
  58. RANITIDINE. [Concomitant]
     Active Substance: RANITIDINE
     Indication: DYSPEPSIA
     Dosage: 150 MG, ONCE/SINGLE
     Route: 048
     Dates: start: 20160925, end: 20160926
  59. VIBRAMYCIN [Concomitant]
     Active Substance: DOXYCYCLINE
     Indication: PRODUCT USED FOR UNKNOWN INDICATION
     Dosage: 100 MG, BID
     Route: 048
  60. GAMUNEX-C [Concomitant]
     Active Substance: HUMAN IMMUNOGLOBULIN G
     Indication: PRODUCT USED FOR UNKNOWN INDICATION
     Dosage: 500 MG/KG, QTUE PRN
     Route: 042
  61. FALMINA [Concomitant]
     Active Substance: ETHINYL ESTRADIOL\LEVONORGESTREL
     Indication: PRODUCT USED FOR UNKNOWN INDICATION
     Dosage: 1 DF (0.1-20MG-MCG TABLET), QHS
     Route: 048
     Dates: end: 20161009
  62. PHENERGAN [Concomitant]
     Active Substance: PROMETHAZINE HYDROCHLORIDE
     Dosage: 25 MG (IN 50ML OF 0.9% NACL), Q8H (PRN)
     Route: 042
     Dates: start: 20160915, end: 20160926
  63. SENOKOT [Concomitant]
     Active Substance: SENNOSIDES
     Indication: PRODUCT USED FOR UNKNOWN INDICATION
     Dosage: 1 DF, BID (PRN)
     Route: 048
     Dates: end: 20161009
  64. VFEND [Concomitant]
     Active Substance: VORICONAZOLE
     Dosage: LEVEL 1 EACH, ONCE
     Route: 065
     Dates: start: 20161013
  65. BUSULFAN. [Concomitant]
     Active Substance: BUSULFAN
     Indication: PRODUCT USED FOR UNKNOWN INDICATION
     Dosage: 0.8 MG/KG (54 MG), 3 DOSES Q6H
     Route: 065
     Dates: start: 20160907, end: 20160907
  66. LASIX [Concomitant]
     Active Substance: FUROSEMIDE
     Dosage: 40 MG, ONCE/SINGLE
     Route: 042
     Dates: start: 20160926, end: 20160926
  67. LASIX [Concomitant]
     Active Substance: FUROSEMIDE
     Dosage: 40 MG, BID
     Route: 042
     Dates: start: 20161003, end: 20161003
  68. LASIX [Concomitant]
     Active Substance: FUROSEMIDE
     Dosage: 40 MG, QD
     Route: 042
     Dates: start: 20161004, end: 20161005
  69. FOSAPREPITANT [Concomitant]
     Active Substance: FOSAPREPITANT
     Indication: CHEMOTHERAPY
     Dosage: 180 MG, QD
     Route: 042
     Dates: start: 20160911, end: 20160911
  70. GUAIFENESIN. [Concomitant]
     Active Substance: GUAIFENESIN
     Indication: NASAL CONGESTION
     Dosage: 600 MG, BID
     Route: 048
     Dates: start: 20161005, end: 20161009
  71. HYDROMORPHONE [Concomitant]
     Active Substance: HYDROMORPHONE
     Dosage: 0.3 MG, UNK
     Route: 042
     Dates: start: 20161002, end: 20161006
  72. MIRALAX [Concomitant]
     Active Substance: POLYETHYLENE GLYCOL 3350
     Indication: PRODUCT USED FOR UNKNOWN INDICATION
     Dosage: ONCE DAILY AS NEEDED
     Route: 048
  73. OXYMETAZOLINE [Concomitant]
     Active Substance: OXYMETAZOLINE
     Indication: NASAL CONGESTION
     Dosage: 2 SPRAYS Q12H PRN
     Route: 045
     Dates: start: 20160928, end: 20160928
  74. POTASSIUM CHLORIDE. [Concomitant]
     Active Substance: POTASSIUM CHLORIDE
     Indication: HYPOKALAEMIA
     Dosage: 20 TO 40 ML, PRN
     Route: 042
     Dates: start: 20160910, end: 20161009
  75. CELLCEPT [Concomitant]
     Active Substance: MYCOPHENOLATE MOFETIL\MYCOPHENOLATE MOFETIL HYDROCHLORIDE
     Indication: PRODUCT USED FOR UNKNOWN INDICATION
     Dosage: 2 DF, Q8H (500 MG TABLET)
     Route: 048
  76. SOM230 [Suspect]
     Active Substance: PASIREOTIDE
     Indication: GASTROINTESTINAL TOXICITY
     Dosage: 0.9 MG, BID
     Route: 058
     Dates: start: 20160906, end: 20160918
  77. FOSCAVIR [Concomitant]
     Active Substance: FOSCARNET SODIUM
     Indication: HUMAN HERPESVIRUS 6 INFECTION
     Dosage: 60 MG/KG (4700MG), QD
     Route: 042
     Dates: start: 20161011
  78. NARCAN [Concomitant]
     Active Substance: NALOXONE HYDROCHLORIDE
     Indication: PRODUCT USED FOR UNKNOWN INDICATION
     Dosage: 0.4 MG, UNK
     Route: 042
  79. ZOFRAN [Concomitant]
     Active Substance: ONDANSETRON HYDROCHLORIDE
     Indication: PRODUCT USED FOR UNKNOWN INDICATION
     Dosage: 4 MG, Q8H (PRN)
     Route: 042
     Dates: end: 20161010
  80. TRANSDERM SCOP [Concomitant]
     Active Substance: SCOPOLAMINE
     Indication: PRODUCT USED FOR UNKNOWN INDICATION
     Dosage: 1 DF (PATCH) (1MG OVER 3 DAYS), Q72H
     Route: 062
     Dates: start: 20160914, end: 20161002
  81. HYDROCORTISONE. [Concomitant]
     Active Substance: HYDROCORTISONE
     Indication: HYPERSENSITIVITY
     Dosage: 50 MG, ONCE/SINGLE
     Route: 042
     Dates: start: 20160914, end: 20160914
  82. HYDROCORTISONE. [Concomitant]
     Active Substance: HYDROCORTISONE
     Dosage: 50 MG, ONCE/SINGLE
     Route: 042
     Dates: start: 20161005, end: 20161005
  83. MELATONIN [Concomitant]
     Active Substance: MELATONIN
     Dosage: 1 DF (3 MG TOTAL) PRN
     Route: 048
  84. METHOTREXATE. [Concomitant]
     Active Substance: METHOTREXATE
     Indication: PROPHYLAXIS AGAINST GRAFT VERSUS HOST DISEASE
     Dosage: 28 MG, ONCE/SINGLE
     Route: 042
     Dates: start: 20160915, end: 20160915
  85. FEXOFENADINE [Concomitant]
     Active Substance: FEXOFENADINE\FEXOFENADINE HYDROCHLORIDE
     Indication: PRODUCT USED FOR UNKNOWN INDICATION
     Dosage: 180 MG, QD
     Route: 048
     Dates: start: 20160909, end: 20161007
  86. LEVAQUIN [Concomitant]
     Active Substance: LEVOFLOXACIN
     Indication: PRODUCT USED FOR UNKNOWN INDICATION
     Dosage: 500 MG, QD FOR 10 DAYS
     Route: 048
  87. CIPRO [Concomitant]
     Active Substance: CIPROFLOXACIN HYDROCHLORIDE
     Indication: PRODUCT USED FOR UNKNOWN INDICATION
     Dosage: 500 MG, BID
     Route: 048
  88. ZOVIRAX [Concomitant]
     Active Substance: ACYCLOVIR
     Indication: PRODUCT USED FOR UNKNOWN INDICATION
     Dosage: 2 DF, BID
     Route: 048
  89. PEPCID [Concomitant]
     Active Substance: FAMOTIDINE
     Indication: PRODUCT USED FOR UNKNOWN INDICATION
     Dosage: 20 MG, BID
     Route: 048
  90. MAG-OX [Concomitant]
     Active Substance: MAGNESIUM OXIDE
     Indication: PRODUCT USED FOR UNKNOWN INDICATION
     Dosage: 400 MG, QD
     Route: 048
  91. NEBUPENT [Concomitant]
     Active Substance: PENTAMIDINE ISETHIONATE
     Indication: PRODUCT USED FOR UNKNOWN INDICATION
     Dosage: EVERY 28 DAYS
     Route: 055
  92. IMODIUM [Concomitant]
     Active Substance: LOPERAMIDE HYDROCHLORIDE
     Indication: PRODUCT USED FOR UNKNOWN INDICATION
     Dosage: 2 MG, QID (PRN)
     Route: 048
  93. PROGRAF [Concomitant]
     Active Substance: TACROLIMUS\TACROLIMUS ANHYDROUS
     Indication: PRODUCT USED FOR UNKNOWN INDICATION
     Dosage: 0.02 MG/HR (2.5 MG IN 0.9% NACL), CONTINUOUS
     Route: 042
     Dates: end: 20151009
  94. BUMEX [Concomitant]
     Active Substance: BUMETANIDE
     Dosage: 2 MG, Q12H
     Route: 042
     Dates: start: 20161009, end: 20161009
  95. ACYCLOVIR. [Concomitant]
     Active Substance: ACYCLOVIR
     Dosage: 2 DF, UNK
     Route: 048
  96. LOPERAMIDE [Concomitant]
     Active Substance: LOPERAMIDE
     Indication: DIARRHOEA
     Dosage: 2 MG, QID
     Route: 065
     Dates: start: 20160912, end: 20160924
  97. PANTOPRAZOLE [Concomitant]
     Active Substance: PANTOPRAZOLE SODIUM
     Indication: GASTROOESOPHAGEAL REFLUX DISEASE
     Dosage: 40 MG, QD
     Route: 048
     Dates: start: 20160927, end: 20161009
  98. DILAUDID [Concomitant]
     Active Substance: HYDROMORPHONE HYDROCHLORIDE
     Indication: PRODUCT USED FOR UNKNOWN INDICATION
     Dosage: 0.5 MG, Q3H
     Route: 042
  99. ZYPREXA [Concomitant]
     Active Substance: OLANZAPINE
     Indication: NAUSEA
     Dosage: 2.5 MG, QHS
     Route: 065
     Dates: start: 20160911, end: 20160912
  100. SODIUM CHLORIDE. [Concomitant]
     Active Substance: SODIUM CHLORIDE
     Dosage: 250 ML (0.9% BOLUS), QD
     Route: 042
     Dates: start: 20161011

REACTIONS (1)
  - Hepatobiliary disease [Recovered/Resolved]

NARRATIVE: CASE EVENT DATE: 20161009
